FAERS Safety Report 12948664 (Version 1)
Quarter: 2016Q4

REPORT INFORMATION
  Report Type: Report from Study
  Country: FR (occurrence: FR)
  Receive Date: 20161117
  Receipt Date: 20161117
  Transmission Date: 20170207
  Serious: Yes (Other)
  Sender: FDA-Public Use
  Company Number: FR-CIPLA LTD.-2016FR21082

PATIENT

DRUGS (2)
  1. PACLITAXEL. [Suspect]
     Active Substance: PACLITAXEL
     Indication: NON-SMALL CELL LUNG CANCER
     Dosage: 90 MG/M2, ON DAYS 1, 8, AND 15
     Route: 065
  2. CARBOPLATIN. [Suspect]
     Active Substance: CARBOPLATIN
     Indication: NON-SMALL CELL LUNG CANCER
     Dosage: AUC-6, ON DAY 1 REPEATED EVERY 4 WEEKS (3 WEEKS ON TREATMENT PLUS 1 WEEK WITHOUT)
     Route: 042

REACTIONS (1)
  - Disease progression [Unknown]
